FAERS Safety Report 5009817-6 (Version None)
Quarter: 2006Q2

REPORT INFORMATION
  Report Type: 
  Country: None (occurrence: None)
  Receive Date: 20060524
  Receipt Date: 20060518
  Transmission Date: 20061013
  Serious: Yes (Hospitalization)
  Sender: FDA-Public Use
  Company Number: FR-JNJFOC-20060504454

PATIENT
  Age: 90 Year
  Sex: Female

DRUGS (6)
  1. REMINYL [Suspect]
     Route: 048
  2. EXELON [Concomitant]
     Route: 065
  3. DEROXAT [Concomitant]
     Route: 065
  4. ATARAX [Concomitant]
     Route: 065
  5. MODOPAR [Concomitant]
     Route: 065
  6. MODOPAR [Concomitant]
     Route: 065

REACTIONS (3)
  - SOMNOLENCE [None]
  - TOXIC INDUCED ENCEPHALOPATHY [None]
  - URINARY TRACT INFECTION [None]
